FAERS Safety Report 5191288-0 (Version None)
Quarter: 2006Q4

REPORT INFORMATION
  Report Type: 
  Country: None (occurrence: None)
  Receive Date: 20061220
  Receipt Date: 20061220
  Transmission Date: 20070319
  Serious: Yes (Other)
  Sender: FDA-Public Use
  Company Number: None

PATIENT
  Sex: Female
  Weight: 72.5755 kg

DRUGS (2)
  1. LEVAQUIN [Suspect]
     Indication: BRONCHITIS
     Dosage: ONCE A DAY  PO
     Route: 048
     Dates: start: 20061212, end: 20061218
  2. LEVAQUIN [Suspect]
     Indication: SINUSITIS
     Dosage: ONCE A DAY  PO
     Route: 048
     Dates: start: 20061212, end: 20061218

REACTIONS (3)
  - ARTHRALGIA [None]
  - GAIT DISTURBANCE [None]
  - JOINT SWELLING [None]
